FAERS Safety Report 11107054 (Version 1)
Quarter: 2015Q2

REPORT INFORMATION
  Report Type: Spontaneous
  Country: BE (occurrence: None)
  Receive Date: 20150508
  Receipt Date: 20150508
  Transmission Date: 20150821
  Serious: Yes (Life-Threatening, Hospitalization)
  Sender: FDA-Public Use
  Company Number: 2015/041

PATIENT
  Age: 18 Year
  Sex: Male

DRUGS (1)
  1. AMLODIPINE [Suspect]
     Active Substance: AMLODIPINE BESYLATE
     Dosage: 700 MG, UNK + UNK

REACTIONS (7)
  - Hypotension [None]
  - Ventricular extrasystoles [None]
  - Toxicity to various agents [None]
  - Intentional overdose [None]
  - Respiratory failure [None]
  - Lung infiltration [None]
  - Pulmonary oedema [None]
